FAERS Safety Report 5323473-9 (Version None)
Quarter: 2007Q2

REPORT INFORMATION
  Report Type: 
  Country: None (occurrence: None)
  Receive Date: 20070514
  Receipt Date: 20070508
  Transmission Date: 20071010
  Serious: Yes (Hospitalization)
  Sender: FDA-Public Use
  Company Number: PHEH2007US03789

PATIENT
  Age: 50 Year
  Sex: Female

DRUGS (6)
  1. ANTIBIOTICS [Concomitant]
  2. ZELNORM [Suspect]
     Dosage: 20 MG, BID
     Route: 048
  3. COLACE [Concomitant]
     Indication: CONSTIPATION
     Dosage: 1-2 TABLETS, BID
     Route: 048
  4. SYNTHROID [Concomitant]
     Indication: HYPOTHYROIDISM
     Route: 048
     Dates: start: 19870101
  5. ESTRACE [Concomitant]
     Indication: HYSTERECTOMY
     Dates: start: 19870101
  6. CELEXA [Concomitant]
     Indication: DEPRESSION
     Route: 048

REACTIONS (5)
  - CHEST PAIN [None]
  - DIZZINESS [None]
  - MUSCULOSKELETAL PAIN [None]
  - PNEUMONIA [None]
  - SENSATION OF HEAVINESS [None]
